FAERS Safety Report 16353935 (Version 1)
Quarter: 2019Q2

REPORT INFORMATION
  Report Type: Spontaneous
  Country: IE (occurrence: IE)
  Receive Date: 20190524
  Receipt Date: 20190524
  Transmission Date: 20190711
  Serious: Yes (Hospitalization)
  Sender: FDA-Public Use
  Company Number: PHHY2019IE115124

PATIENT
  Age: 41 Year
  Sex: Female

DRUGS (5)
  1. IRON [Suspect]
     Active Substance: IRON
     Indication: HAEMOGLOBIN DECREASED
     Route: 065
  2. LABETALOL [Suspect]
     Active Substance: LABETALOL\LABETALOL HYDROCHLORIDE
     Indication: HYPERTENSION
     Dosage: 200 MG, TID
     Route: 065
  3. URSODEOXYCHOLIC ACID [Suspect]
     Active Substance: URSODIOL
     Indication: CHOLESTASIS
     Route: 065
  4. BETAMETHASONE. [Suspect]
     Active Substance: BETAMETHASONE
     Indication: MATERNAL THERAPY TO ENHANCE FOETAL LUNG MATURITY
     Route: 065
  5. MAGNESIUM [Suspect]
     Active Substance: MAGNESIUM
     Indication: PRODUCT USED FOR UNKNOWN INDICATION
     Dosage: LOADING DOSE
     Route: 065

REACTIONS (7)
  - Proteinuria [Recovered/Resolved]
  - Hyponatraemia [Recovered/Resolved]
  - Product use in unapproved indication [Unknown]
  - Maternal exposure during pregnancy [Unknown]
  - Hypertension [Recovering/Resolving]
  - Premature delivery [Unknown]
  - Pre-eclampsia [Unknown]
